FAERS Safety Report 13296925 (Version 10)
Quarter: 2017Q4

REPORT INFORMATION
  Report Type: Report from Study
  Country: CH (occurrence: CH)
  Receive Date: 20170306
  Receipt Date: 20171107
  Transmission Date: 20180320
  Serious: Yes (Hospitalization)
  Sender: FDA-Public Use
  Company Number: CH-ROCHE-1853090

PATIENT
  Age: 73 Year
  Sex: Female
  Weight: 49 kg

DRUGS (19)
  1. BEVACIZUMAB. [Suspect]
     Active Substance: BEVACIZUMAB
     Indication: NON-SMALL CELL LUNG CANCER STAGE IV
     Dosage: MOST RECENT DOSE PRIOR TO AE ONSET: 31/OCT/2016, 705 MG
     Route: 042
     Dates: start: 20160526
  2. CARBOPLATIN. [Suspect]
     Active Substance: CARBOPLATIN
     Indication: NON-SMALL CELL LUNG CANCER STAGE IV
     Dosage: AREA UNDER THE CONCENTRATION CURVE (AUC) 6 ON DAY 1 OF EACH 21-DAY CYCLE FOR 4 OR 6 CYCLES (PER PROT
     Route: 042
     Dates: start: 20160526
  3. SIMCORA [Concomitant]
     Active Substance: SIMVASTATIN
     Indication: DYSLIPIDAEMIA
     Route: 065
     Dates: end: 20170703
  4. IMODIUM [Concomitant]
     Active Substance: LOPERAMIDE HYDROCHLORIDE
     Indication: DIARRHOEA
     Route: 065
     Dates: start: 20161010, end: 20161010
  5. BECOZYME FORTE [Concomitant]
     Indication: PROPHYLAXIS
     Route: 065
     Dates: start: 20160727, end: 20170123
  6. XGEVA [Concomitant]
     Active Substance: DENOSUMAB
     Indication: METASTASES TO BONE
     Route: 065
     Dates: start: 20170428, end: 20170703
  7. PANTOZOL (SWITZERLAND) [Concomitant]
     Active Substance: PANTOPRAZOLE SODIUM
     Indication: PROPHYLAXIS
     Route: 065
     Dates: start: 20160706, end: 20161221
  8. LAXOBERON [Concomitant]
     Active Substance: SODIUM PICOSULFATE
     Indication: PROPHYLAXIS
     Dosage: PROPHYLAXIS BECAUSE OF DUROGESIC
     Route: 065
     Dates: start: 20170401
  9. PACLITAXEL. [Suspect]
     Active Substance: PACLITAXEL
     Indication: NON-SMALL CELL LUNG CANCER STAGE IV
     Dosage: DAY 1 OF EACH 21-DAY CYCLE FOR 4 OR 6 CYCLES (PER PROTOCOL)?MOST RECENT DOSE PRIOR TO AE ONSET: 27/J
     Route: 042
     Dates: start: 20160526
  10. ZOMETA [Concomitant]
     Active Substance: ZOLEDRONIC ACID
     Indication: METASTASES TO BONE
     Route: 065
     Dates: start: 20170703
  11. CALCIMAGON-D3 [Concomitant]
     Active Substance: CALCIUM\CHOLECALCIFEROL
     Indication: PROPHYLAXIS
     Dosage: 500MG/400IU
     Route: 065
  12. DUROGESIC [Concomitant]
     Active Substance: FENTANYL
     Indication: CHEST PAIN
     Route: 050
     Dates: end: 20170421
  13. ZOLPIDEM [Concomitant]
     Active Substance: ZOLPIDEM\ZOLPIDEM TARTRATE
     Indication: PROPHYLAXIS
     Route: 065
     Dates: start: 20170308
  14. XARELTO [Concomitant]
     Active Substance: RIVAROXABAN
     Indication: ATRIAL FIBRILLATION
     Route: 065
     Dates: start: 20160224
  15. CONCOR [Concomitant]
     Active Substance: BISOPROLOL FUMARATE
     Indication: HYPERTONIA
     Route: 065
     Dates: start: 20160224
  16. MAGNESIOCARD [Concomitant]
     Active Substance: MAGNESIUM ASPARTATE HYDROCHLORIDE
     Indication: PROPHYLAXIS
     Route: 065
     Dates: start: 20160601
  17. DAFALGAN [Concomitant]
     Active Substance: ACETAMINOPHEN
     Indication: SPINAL PAIN
     Route: 065
     Dates: start: 20161026, end: 20161121
  18. AMLODIPIN [Concomitant]
     Active Substance: AMLODIPINE BESYLATE
     Indication: HYPERTONIA
     Route: 065
     Dates: start: 20161031, end: 20170331
  19. ATEZOLIZUMAB. [Suspect]
     Active Substance: ATEZOLIZUMAB
     Indication: NON-SMALL CELL LUNG CANCER STAGE IV
     Dosage: MOST RECENT DOSE PRIOR TO AE ONSET: 31/OCT/2016, 1200MG?MOST RECENT DOSE PRIOR TO AE ONSET: 03/JUL/2
     Route: 042
     Dates: start: 20160526

REACTIONS (2)
  - Diverticulitis [Recovering/Resolving]
  - Diverticulitis [Recovered/Resolved]

NARRATIVE: CASE EVENT DATE: 20161106
